FAERS Safety Report 5216728-X (Version None)
Quarter: 2007Q1

REPORT INFORMATION
  Report Type: 
  Country: None (occurrence: None)
  Receive Date: 20070118
  Receipt Date: 20070103
  Transmission Date: 20070707
  Serious: Yes (Death)
  Sender: FDA-Public Use
  Company Number: 234592

PATIENT
  Age: 71 Year
  Sex: Female

DRUGS (1)
  1. MABTHERA(RITUXIMAB) CONC FOR SOLUTION FOR INFUSION [Suspect]
     Indication: DRUG USE FOR UNKNOWN INDICATION
     Dosage: 400 MG, QD,
     Dates: start: 20060922, end: 20060922

REACTIONS (2)
  - HAEMODYNAMIC INSTABILITY [None]
  - ISCHAEMIC STROKE [None]
